FAERS Safety Report 17245991 (Version 2)
Quarter: 2020Q1

REPORT INFORMATION
  Report Type: Spontaneous
  Country: GB (occurrence: GB)
  Receive Date: 20200108
  Receipt Date: 20200227
  Transmission Date: 20200409
  Serious: Yes (Other)
  Sender: FDA-Public Use
  Company Number: GB-ACCORD-168473

PATIENT
  Age: 67 Year
  Sex: Female
  Weight: 32 kg

DRUGS (5)
  1. PARACETAMOL [Concomitant]
     Active Substance: ACETAMINOPHEN
     Dosage: ONE TABLET FOUR TIMES DAILY
     Dates: start: 20181211, end: 20191217
  2. LACTULOSE. [Concomitant]
     Active Substance: LACTULOSE
     Dates: start: 20181211, end: 20191217
  3. IRON [Concomitant]
     Active Substance: IRON
     Dates: start: 20191203, end: 20191217
  4. IRON [Concomitant]
     Active Substance: IRON
     Dates: start: 20191217
  5. SERTRALINE [Suspect]
     Active Substance: SERTRALINE HYDROCHLORIDE
     Indication: PRODUCT USED FOR UNKNOWN INDICATION
     Dosage: AFTER BREAKFAST
     Dates: start: 20191113

REACTIONS (1)
  - Inappropriate affect [Recovered/Resolved]

NARRATIVE: CASE EVENT DATE: 20191217
